FAERS Safety Report 7495262-0 (Version None)
Quarter: 2011Q2

REPORT INFORMATION
  Report Type: 
  Country: None (occurrence: None)
  Receive Date: 20110522
  Receipt Date: 20110512
  Transmission Date: 20111010
  Serious: Yes (Hospitalization)
  Sender: FDA-Public Use
  Company Number: DE-ALLERGAN-1106699US

PATIENT
  Age: 9 Week
  Sex: Male
  Weight: 5.6 kg

DRUGS (1)
  1. BRIMONIDINE TARTRATE [Suspect]
     Indication: DEVELOPMENTAL GLAUCOMA
     Dosage: 1 DROP INSTILLED INTO THE RIGHT EYE
     Route: 047

REACTIONS (8)
  - HYPOTONIA [None]
  - SOMNOLENCE [None]
  - PALLOR [None]
  - HYPOPNOEA [None]
  - RESTLESSNESS [None]
  - MIOSIS [None]
  - RESPIRATORY DISORDER [None]
  - FONTANELLE DEPRESSED [None]
